FAERS Safety Report 18276981 (Version 1)
Quarter: 2020Q3

REPORT INFORMATION
  Report Type: Spontaneous
  Country: US (occurrence: US)
  Receive Date: 20200904
  Receipt Date: 20200904
  Transmission Date: 20201103
  Serious: Yes (Death)
  Sender: FDA-Public Use
  Company Number: None

PATIENT
  Age: 7 Decade
  Sex: Female

DRUGS (3)
  1. HYDROXYCHLOROQUINE [Suspect]
     Active Substance: HYDROXYCHLOROQUINE
  2. LOPINAVIR?RITONAVIR [Suspect]
     Active Substance: LOPINAVIR\RITONAVIR
     Indication: COVID-19
  3. DEXAMETHASONE. [Suspect]
     Active Substance: DEXAMETHASONE

REACTIONS (5)
  - Product use issue [None]
  - Acute kidney injury [None]
  - Product use in unapproved indication [None]
  - Acute respiratory distress syndrome [None]
  - Complications of transplanted kidney [None]
